FAERS Safety Report 20589857 (Version 1)
Quarter: 2022Q1

REPORT INFORMATION
  Report Type: Spontaneous
  Country: US (occurrence: None)
  Receive Date: 20220311
  Receipt Date: 20220311
  Transmission Date: 20220423
  Serious: Yes (Other)
  Sender: FDA-Public Use
  Company Number: None

PATIENT
  Age: 27 Year
  Sex: Female
  Weight: 45 kg

DRUGS (3)
  1. DEXTROAMPHET SACCHARAT, AMPHET ASPARTATE, DEXTROAMPHET SULFATE AND AMP [Suspect]
     Active Substance: AMPHETAMINE ASPARTATE\AMPHETAMINE SULFATE\DEXTROAMPHETAMINE SACCHARATE\DEXTROAMPHETAMINE SULFATE
     Indication: Attention deficit hyperactivity disorder
     Dosage: FREQUENCY : DAILY;?QUANTITY: 1 CAPSULE
     Route: 048
     Dates: start: 20210701, end: 20220308
  2. BUPROPION [Concomitant]
     Active Substance: BUPROPION
  3. WHITE WILLOWS BARK [Concomitant]

REACTIONS (7)
  - Headache [None]
  - Abdominal pain upper [None]
  - Depressed level of consciousness [None]
  - Disturbance in attention [None]
  - Depression [None]
  - Anxiety [None]
  - Panic attack [None]

NARRATIVE: CASE EVENT DATE: 20220309
